FAERS Safety Report 16310972 (Version 1)
Quarter: 2019Q2

REPORT INFORMATION
  Report Type: Spontaneous
  Country: US (occurrence: US)
  Receive Date: 20190514
  Receipt Date: 20190514
  Transmission Date: 20190711
  Serious: Yes (Other)
  Sender: FDA-Public Use
  Company Number: US-JNJFOC-20190516372

PATIENT
  Age: 17 Year
  Sex: Male

DRUGS (11)
  1. FENTANYL. [Suspect]
     Active Substance: FENTANYL
     Indication: CANCER PAIN
     Route: 065
  2. FENTANYL. [Suspect]
     Active Substance: FENTANYL
     Indication: CANCER PAIN
     Route: 065
  3. FENTANYL. [Suspect]
     Active Substance: FENTANYL
     Indication: CANCER PAIN
     Route: 065
  4. MORPHINE [Suspect]
     Active Substance: MORPHINE
     Indication: CANCER PAIN
     Route: 065
  5. FENTANYL. [Suspect]
     Active Substance: FENTANYL
     Indication: CANCER PAIN
     Route: 065
  6. FENTANYL. [Suspect]
     Active Substance: FENTANYL
     Indication: CANCER PAIN
     Route: 065
  7. FENTANYL. [Suspect]
     Active Substance: FENTANYL
     Indication: PRODUCT USED FOR UNKNOWN INDICATION
     Route: 041
  8. FENTANYL. [Suspect]
     Active Substance: FENTANYL
     Indication: CANCER PAIN
     Route: 065
  9. MORPHINE [Suspect]
     Active Substance: MORPHINE
     Indication: CANCER PAIN
     Route: 065
  10. FENTANYL. [Suspect]
     Active Substance: FENTANYL
     Indication: CANCER PAIN
     Route: 065
  11. MORPHINE [Suspect]
     Active Substance: MORPHINE
     Indication: PRODUCT USED FOR UNKNOWN INDICATION
     Route: 041

REACTIONS (5)
  - Inappropriate schedule of product administration [Unknown]
  - Panic attack [Unknown]
  - Off label use [Unknown]
  - Drug use disorder [Recovering/Resolving]
  - Sedation complication [Recovering/Resolving]
